FAERS Safety Report 16853438 (Version 1)
Quarter: 2019Q3

REPORT INFORMATION
  Report Type: Report from Study
  Country: US (occurrence: US)
  Receive Date: 20190925
  Receipt Date: 20190925
  Transmission Date: 20191005
  Serious: Yes (Other)
  Sender: FDA-Public Use
  Company Number: US-BIOGEN-2019BI00786759

PATIENT
  Sex: Female
  Weight: 85.81 kg

DRUGS (1)
  1. TECFIDERA [Suspect]
     Active Substance: DIMETHYL FUMARATE
     Indication: MULTIPLE SCLEROSIS
     Route: 048
     Dates: start: 2015

REACTIONS (3)
  - Polyp [Not Recovered/Not Resolved]
  - Cytogenetic analysis abnormal [Unknown]
  - Intestinal cyst [Not Recovered/Not Resolved]
